FAERS Safety Report 11910931 (Version 1)
Quarter: 2016Q1

REPORT INFORMATION
  Report Type: Spontaneous
  Country: US (occurrence: None)
  Receive Date: 20160111
  Receipt Date: 20160111
  Transmission Date: 20160526
  Serious: No
  Sender: FDA-Public Use
  Company Number: None

PATIENT
  Age: 64 Year
  Sex: Female
  Weight: 68.95 kg

DRUGS (10)
  1. NOVOLOG [Concomitant]
     Active Substance: INSULIN ASPART
  2. ASPIRIN. [Concomitant]
     Active Substance: ASPIRIN
  3. FREESTYLE LITE LANCET AND METER STRIPS [Concomitant]
  4. GABAPENTIN. [Concomitant]
     Active Substance: GABAPENTIN
  5. DICLOFENAC [Concomitant]
     Active Substance: DICLOFENAC
  6. SIMVASTATIN. [Concomitant]
     Active Substance: SIMVASTATIN
  7. SIMVASTATIN 40MG [Suspect]
     Active Substance: SIMVASTATIN
     Indication: CEREBROVASCULAR ACCIDENT
     Dosage: 1 PILL
     Route: 048
     Dates: start: 20151221, end: 20160108
  8. VITAMIN B COMPLEX [Concomitant]
     Active Substance: CYANOCOBALAMIN\DEXPANTHENOL\NIACINAMIDE\PYRIDOXINE HYDROCHLORIDE\RIBOFLAVIN 5^-PHOSPHATE SODIUM\THIAMINE HYDROCHLORIDE\VITAMIN B COMPLEX
  9. LUNTUS INSULIN GLARGINE [Concomitant]
  10. FREESTYLE LITE BLOOD SUGAR METER [Concomitant]

REACTIONS (8)
  - Nightmare [None]
  - Abdominal pain upper [None]
  - Dyspnoea [None]
  - Panic attack [None]
  - Haematochezia [None]
  - Fatigue [None]
  - Asthenia [None]
  - Balance disorder [None]

NARRATIVE: CASE EVENT DATE: 20160103
